FAERS Safety Report 5185680-8 (Version None)
Quarter: 2006Q4

REPORT INFORMATION
  Report Type: 
  Country: None (occurrence: None)
  Receive Date: 20061220
  Receipt Date: 20060824
  Transmission Date: 20070319
  Serious: No
  Sender: FDA-Public Use
  Company Number: US-GLAXOSMITHKLINE-A0617945A

PATIENT
  Age: 49 Year
  Sex: Female

DRUGS (4)
  1. NICODERM CQ [Suspect]
     Dates: start: 20060805, end: 20060814
  2. NICODERM CQ [Suspect]
     Dates: start: 20060815
  3. IBUPROFEN [Concomitant]
  4. SINGULAIR [Concomitant]

REACTIONS (7)
  - ABNORMAL DREAMS [None]
  - APPLICATION SITE ERYTHEMA [None]
  - APPLICATION SITE IRRITATION [None]
  - APPLICATION SITE PRURITUS [None]
  - APPLICATION SITE RASH [None]
  - MOUTH ULCERATION [None]
  - NICOTINE DEPENDENCE [None]
